FAERS Safety Report 8908055 (Version 1)
Quarter: 2012Q4

REPORT INFORMATION
  Report Type: Report from Study
  Country: CA (occurrence: CA)
  Receive Date: 20121114
  Receipt Date: 20121114
  Transmission Date: 20130627
  Serious: Yes (Death)
  Sender: FDA-Public Use
  Company Number: PHHY2012CA104239

PATIENT
  Sex: Male

DRUGS (3)
  1. CLOZARIL [Suspect]
     Dates: start: 2011
  2. CLOZARIL [Suspect]
     Dosage: 250 mg, daily
  3. CLOZARIL [Suspect]

REACTIONS (2)
  - Death [Fatal]
  - Antipsychotic drug level increased [Unknown]
